FAERS Safety Report 11441917 (Version 1)
Quarter: 2015Q3

REPORT INFORMATION
  Report Type: Spontaneous
  Country: GB (occurrence: GB)
  Receive Date: 20150901
  Receipt Date: 20150901
  Transmission Date: 20151125
  Serious: Yes (Hospitalization)
  Sender: FDA-Public Use
  Company Number: GB-MYLANLABS-2015M1029243

PATIENT

DRUGS (3)
  1. CANESTEN [Suspect]
     Active Substance: CLOTRIMAZOLE
     Indication: GENITAL RASH
     Dosage: 1%
     Route: 061
  2. FLUCONAZOLE. [Suspect]
     Active Substance: FLUCONAZOLE
     Indication: GENITAL RASH
     Route: 048
  3. FLUCLOXACILLIN [Concomitant]
     Active Substance: FLUCLOXACILLIN
     Indication: GENITAL RASH
     Route: 048

REACTIONS (4)
  - Pruritus genital [Unknown]
  - Anal pruritus [Unknown]
  - Rash generalised [Unknown]
  - Dermatitis contact [Unknown]
